FAERS Safety Report 15563801 (Version 1)
Quarter: 2018Q4

REPORT INFORMATION
  Report Type: Spontaneous
  Country: US (occurrence: US)
  Receive Date: 20181029
  Receipt Date: 20181029
  Transmission Date: 20190205
  Serious: Yes (Other)
  Sender: FDA-Public Use
  Company Number: US-BAXTER-2017BAX034919

PATIENT

DRUGS (5)
  1. OXYGEN. [Concomitant]
     Active Substance: OXYGEN
     Indication: PRODUCT USED FOR UNKNOWN INDICATION
     Route: 065
  2. MIDAZOLAM HYDROCHLORIDE INJECTION, USP [Suspect]
     Active Substance: MIDAZOLAM HYDROCHLORIDE
     Dosage: SELF-ADMINISTER THE REMAINING CONTENTS OF THE SYRINGE
     Route: 042
  3. KETAMINE [Suspect]
     Active Substance: KETAMINE
     Indication: SEDATIVE THERAPY
     Dosage: 5 MG/ML
     Route: 042
  4. MIDAZOLAM HYDROCHLORIDE INJECTION, USP [Suspect]
     Active Substance: MIDAZOLAM HYDROCHLORIDE
     Indication: SEDATIVE THERAPY
     Dosage: 1 MG/ML, SYRINGE
     Route: 042
  5. KETAMINE [Suspect]
     Active Substance: KETAMINE
     Dosage: SELF-ADMINISTER THE REMAINING CONTENTS OF THE SYRINGE
     Route: 042

REACTIONS (2)
  - Substance abuse [Unknown]
  - Sedation complication [Recovered/Resolved]
